FAERS Safety Report 8970893 (Version 1)
Quarter: 2012Q4

REPORT INFORMATION
  Report Type: 
  Country: US (occurrence: US)
  Receive Date: 20121218
  Receipt Date: 20121218
  Transmission Date: 20130627
  Serious: Yes (Hospitalization, Other)
  Sender: FDA-Public Use
  Company Number: US-ELI_LILLY_AND_COMPANY-US201212002194

PATIENT
  Sex: Female

DRUGS (1)
  1. HUMULIN NPH [Suspect]

REACTIONS (2)
  - Hospitalisation [Unknown]
  - Altered state of consciousness [Recovered/Resolved]
